FAERS Safety Report 15246119 (Version 1)
Quarter: 2018Q3

REPORT INFORMATION
  Report Type: Spontaneous
  Country: RO (occurrence: RO)
  Receive Date: 20180806
  Receipt Date: 20180806
  Transmission Date: 20181010
  Serious: Yes (Hospitalization, Other)
  Sender: FDA-Public Use
  Company Number: RO-TEVA-2018-RO-936474

PATIENT
  Age: 63 Year
  Sex: Female

DRUGS (2)
  1. IMATINIB [Suspect]
     Active Substance: IMATINIB
     Indication: GASTROINTESTINAL STROMAL TUMOUR
     Route: 065
  2. SUTENT [Suspect]
     Active Substance: SUNITINIB MALATE
     Indication: GASTROINTESTINAL STROMAL TUMOUR
     Route: 065
     Dates: start: 201612, end: 201712

REACTIONS (4)
  - Gastrointestinal stromal tumour [Unknown]
  - Blood iron decreased [Recovering/Resolving]
  - Malignant neoplasm progression [Unknown]
  - Haemoglobin decreased [Recovering/Resolving]
